FAERS Safety Report 15779427 (Version 1)
Quarter: 2019Q1

REPORT INFORMATION
  Report Type: Spontaneous
  Country: US (occurrence: US)
  Receive Date: 20190101
  Receipt Date: 20190101
  Transmission Date: 20190417
  Serious: Yes (Other)
  Sender: FDA-Public Use
  Company Number: US-ABBVIE-18K-163-2608957-00

PATIENT
  Sex: Female

DRUGS (1)
  1. MAVYRET [Suspect]
     Active Substance: GLECAPREVIR\PIBRENTASVIR
     Indication: HEPATITIS C
     Dosage: 100-40MG
     Route: 048
     Dates: start: 20180813, end: 20180828

REACTIONS (5)
  - Pain [Unknown]
  - Joint swelling [Unknown]
  - Gait disturbance [Unknown]
  - Peripheral swelling [Unknown]
  - Fatigue [Unknown]

NARRATIVE: CASE EVENT DATE: 2018
